FAERS Safety Report 5471667-4 (Version None)
Quarter: 2007Q3

REPORT INFORMATION
  Report Type: 
  Country: None (occurrence: None)
  Receive Date: 20070928
  Receipt Date: 20070319
  Transmission Date: 20080115
  Serious: No
  Sender: FDA-Public Use
  Company Number: US-BRISTOL-MYERS SQUIBB COMPANY-13719505

PATIENT
  Age: 47 Year
  Sex: Male

DRUGS (3)
  1. DEFINITY [Suspect]
     Indication: STRESS ECHOCARDIOGRAM
     Dates: start: 20070319, end: 20070319
  2. LOPRESSOR [Concomitant]
  3. CELEXA [Concomitant]

REACTIONS (2)
  - DIZZINESS [None]
  - FLUSHING [None]
